FAERS Safety Report 5608850-0 (Version None)
Quarter: 2008Q1

REPORT INFORMATION
  Report Type: 
  Country: None (occurrence: None)
  Receive Date: 20080128
  Receipt Date: 20080128
  Transmission Date: 20080703
  Serious: Yes (Other)
  Sender: FDA-Public Use
  Company Number: None

PATIENT
  Age: 9 Year
  Sex: Male
  Weight: 23 kg

DRUGS (1)
  1. HEPARIN [Suspect]
     Indication: PERITONEAL DIALYSIS
     Dosage: 1CC/1000 UNITS EVERY NIGHT INTRAPERITO
     Route: 033
     Dates: start: 20080101, end: 20080120

REACTIONS (6)
  - ABDOMINAL PAIN [None]
  - HYPOTENSION [None]
  - NAUSEA [None]
  - PHARMACEUTICAL PRODUCT COMPLAINT [None]
  - RETCHING [None]
  - VOMITING [None]
